FAERS Safety Report 16283523 (Version 3)
Quarter: 2022Q4

REPORT INFORMATION
  Report Type: Spontaneous
  Country: US (occurrence: None)
  Receive Date: 20190507
  Receipt Date: 20221220
  Transmission Date: 20230113
  Serious: Yes (Death, Hospitalization, Other)
  Sender: FDA-Public Use
  Company Number: 2019SE62684

PATIENT
  Age: 19254 Day
  Sex: Female
  Weight: 59.4 kg

DRUGS (62)
  1. PRILOSEC OTC [Suspect]
     Active Substance: OMEPRAZOLE MAGNESIUM
     Indication: Gastrooesophageal reflux disease
     Route: 048
     Dates: start: 200601, end: 200812
  2. PRILOSEC OTC [Suspect]
     Active Substance: OMEPRAZOLE MAGNESIUM
     Indication: Gastrooesophageal reflux disease
     Route: 048
     Dates: start: 2013, end: 2017
  3. NEXIUM [Suspect]
     Active Substance: ESOMEPRAZOLE MAGNESIUM
     Indication: Gastrooesophageal reflux disease
     Route: 048
     Dates: start: 20080716, end: 20080920
  4. NEXIUM [Suspect]
     Active Substance: ESOMEPRAZOLE MAGNESIUM
     Indication: Gastrooesophageal reflux disease
     Dosage: GENERIC
     Route: 065
     Dates: start: 20080721, end: 20080723
  5. PRILOSEC [Suspect]
     Active Substance: OMEPRAZOLE MAGNESIUM
     Indication: Gastrooesophageal reflux disease
     Route: 048
     Dates: start: 1989, end: 2008
  6. PRILOSEC [Suspect]
     Active Substance: OMEPRAZOLE MAGNESIUM
     Indication: Gastrooesophageal reflux disease
     Route: 048
     Dates: start: 1989, end: 2008
  7. PANTOPRAZOLE [Suspect]
     Active Substance: PANTOPRAZOLE
     Indication: Gastrooesophageal reflux disease
     Route: 065
     Dates: start: 2014, end: 2016
  8. PROTONIX [Suspect]
     Active Substance: PANTOPRAZOLE SODIUM
     Indication: Gastrooesophageal reflux disease
     Route: 065
     Dates: start: 2014, end: 2016
  9. INSULIN NOS [Concomitant]
     Active Substance: INSULIN NOS
     Indication: Diabetes mellitus
  10. LIPITOR [Concomitant]
     Active Substance: ATORVASTATIN CALCIUM
     Indication: Blood cholesterol increased
     Route: 065
     Dates: start: 2011
  11. LIPITOR [Concomitant]
     Active Substance: ATORVASTATIN CALCIUM
     Indication: Hyperlipidaemia
     Route: 065
     Dates: start: 2011
  12. NIFEDIPINE [Concomitant]
     Active Substance: NIFEDIPINE
     Indication: Hypertension
  13. SENSIPAR [Concomitant]
     Active Substance: CINACALCET HYDROCHLORIDE
     Indication: Blood calcium abnormal
  14. RENVELA [Concomitant]
     Active Substance: SEVELAMER CARBONATE
     Indication: Dialysis
  15. CHOLINE/OXITRIPTAN/THEOBROMA CACAO/GLUTAMIC ACID/TRAZODONE/VITIS VINIF [Concomitant]
     Indication: Depression
  16. ASPIRIN [Concomitant]
     Active Substance: ASPIRIN
     Indication: Cardiac disorder
  17. CALCIUM CARBONATE [Concomitant]
     Active Substance: CALCIUM CARBONATE
     Indication: Abdominal discomfort
  18. ERGOCALCIFEROL [Concomitant]
     Active Substance: ERGOCALCIFEROL
     Indication: Vitamin D abnormal
  19. LANTUS [Concomitant]
     Active Substance: INSULIN GLARGINE
  20. LISINOPRIL [Concomitant]
     Active Substance: LISINOPRIL
     Indication: Hypertension
     Route: 065
     Dates: start: 2011
  21. METFORMIN [Concomitant]
     Active Substance: METFORMIN HYDROCHLORIDE
  22. GLYBURIDE [Concomitant]
     Active Substance: GLYBURIDE
  23. WELLBUTRIN [Concomitant]
     Active Substance: BUPROPION HYDROCHLORIDE
  24. LABETALOL [Concomitant]
     Active Substance: LABETALOL\LABETALOL HYDROCHLORIDE
  25. PROCRIT [Concomitant]
     Active Substance: ERYTHROPOIETIN
  26. VITAMINS [Concomitant]
     Active Substance: VITAMINS
  27. METRONIDAZOLE [Concomitant]
     Active Substance: METRONIDAZOLE
  28. ALBUTEROL [Concomitant]
     Active Substance: ALBUTEROL
  29. IRON [Concomitant]
     Active Substance: IRON
  30. ZOLPIDEM [Concomitant]
     Active Substance: ZOLPIDEM TARTRATE
  31. BIFIDOBACTERIUM INFANTIS/FRUCTOOLIGOSACCHARIDES/ACACIA SPP./STREPTOCOC [Concomitant]
  32. COLACE [Concomitant]
     Active Substance: DOCUSATE SODIUM
  33. FAMOTIDINE [Concomitant]
     Active Substance: FAMOTIDINE
  34. ATORVASTATIN [Concomitant]
     Active Substance: ATORVASTATIN
     Indication: Hyperlipidaemia
     Route: 065
     Dates: start: 2011
  35. METHIMAZOLE [Concomitant]
     Active Substance: METHIMAZOLE
  36. LEVAQUIN [Concomitant]
     Active Substance: LEVOFLOXACIN
  37. NAFCILLIN [Concomitant]
     Active Substance: NAFCILLIN SODIUM
  38. DARVON [Concomitant]
     Active Substance: PROPOXYPHENE HYDROCHLORIDE
  39. VANCOMYCIN [Concomitant]
     Active Substance: VANCOMYCIN
  40. ENOXAPARIN [Concomitant]
     Active Substance: ENOXAPARIN
  41. SENOKOT [Concomitant]
     Active Substance: SENNOSIDES
  42. PERCOCET [Concomitant]
     Active Substance: ACETAMINOPHEN\OXYCODONE HYDROCHLORIDE
  43. VORICONAZOLE [Concomitant]
     Active Substance: VORICONAZOLE
  44. MIRALAX [Concomitant]
     Active Substance: POLYETHYLENE GLYCOL 3350
  45. HEPARIN [Concomitant]
     Active Substance: HEPARIN SODIUM
  46. CALCIUM GLUCONATE [Concomitant]
     Active Substance: CALCIUM GLUCONATE
  47. SODIUM CHLORIDE [Concomitant]
     Active Substance: SODIUM CHLORIDE
  48. GENTAMICIN [Concomitant]
     Active Substance: GENTAMICIN
  49. DEXTROSE [Concomitant]
     Active Substance: DEXTROSE
  50. HYDROMORPHONE [Concomitant]
     Active Substance: HYDROMORPHONE
  51. TEMAZEPAM [Concomitant]
     Active Substance: TEMAZEPAM
  52. PROAIR HFA [Concomitant]
     Active Substance: ALBUTEROL SULFATE
  53. KLONEX [Concomitant]
  54. TAMIFLU [Concomitant]
     Active Substance: OSELTAMIVIR PHOSPHATE
  55. VITAMIN D2 [Concomitant]
     Active Substance: ERGOCALCIFEROL
  56. NIFEDIAC CC [Concomitant]
     Active Substance: NIFEDIPINE
  57. MUPIROCIN [Concomitant]
     Active Substance: MUPIROCIN
  58. TRAMADOL [Concomitant]
     Active Substance: TRAMADOL
     Indication: Pain
     Route: 065
     Dates: start: 2012, end: 2015
  59. SULFAMETHOXAZOLE [Concomitant]
     Active Substance: SULFAMETHOXAZOLE
     Indication: Infection
     Route: 065
     Dates: start: 2013
  60. LEVOFLOXACIN [Concomitant]
     Active Substance: LEVOFLOXACIN
     Indication: Infection
     Route: 065
     Dates: start: 2014
  61. AZITHROMYCIN [Concomitant]
     Active Substance: AZITHROMYCIN
     Indication: Infection
     Route: 065
     Dates: start: 2010, end: 2014
  62. AMOXICILLIN [Concomitant]
     Active Substance: AMOXICILLIN
     Indication: Infection
     Route: 065
     Dates: start: 2016

REACTIONS (10)
  - Chronic kidney disease [Fatal]
  - Renal failure [Fatal]
  - Acute respiratory failure [Fatal]
  - Acute kidney injury [Unknown]
  - End stage renal disease [Unknown]
  - Hyperparathyroidism secondary [Unknown]
  - Chronic kidney disease-mineral and bone disorder [Unknown]
  - Nephrogenic anaemia [Unknown]
  - Renal tubular necrosis [Unknown]
  - Tubulointerstitial nephritis [Unknown]

NARRATIVE: CASE EVENT DATE: 20080716
